FAERS Safety Report 7638754-3 (Version None)
Quarter: 2011Q3

REPORT INFORMATION
  Report Type: 
  Country: None (occurrence: None)
  Receive Date: 20110727
  Receipt Date: 20110717
  Transmission Date: 20111222
  Serious: Yes (Hospitalization, Other)
  Sender: FDA-Public Use
  Company Number: US-ROCHE-780287

PATIENT
  Sex: Female

DRUGS (7)
  1. PROTONIX [Concomitant]
  2. COMPAZINE [Concomitant]
     Dosage: AS NEEDED
  3. RIBASPHERE [Suspect]
     Indication: HEPATITIS C
     Dosage: FREQUENCY: DAILY, DIVIDED DOSES
     Route: 065
     Dates: start: 20110515
  4. LEVAQUIN [Concomitant]
  5. PEGASYS [Suspect]
     Indication: HEPATITIS C
     Dosage: FORM: PRE FILLED SYRINGES
     Route: 042
     Dates: start: 20110515
  6. NEUPOGEN [Concomitant]
     Dosage: FORM: INJECTION
  7. BOCEPREVIR [Concomitant]
     Dosage: REPORTED AS VICTRELIS
     Dates: start: 20110515

REACTIONS (12)
  - NAUSEA [None]
  - DIARRHOEA [None]
  - WHITE BLOOD CELL COUNT DECREASED [None]
  - HYPOAESTHESIA [None]
  - HEADACHE [None]
  - FATIGUE [None]
  - DYSPNOEA [None]
  - PALPITATIONS [None]
  - CHEST DISCOMFORT [None]
  - DIZZINESS [None]
  - PAIN [None]
  - DECREASED APPETITE [None]
